FAERS Safety Report 11074201 (Version 1)
Quarter: 2015Q2

REPORT INFORMATION
  Report Type: Spontaneous
  Country: US (occurrence: None)
  Receive Date: 20150428
  Receipt Date: 20150428
  Transmission Date: 20150821
  Serious: Yes (Other)
  Sender: FDA-Public Use
  Company Number: None

PATIENT
  Age: 60 Year
  Sex: Female
  Weight: 56.7 kg

DRUGS (3)
  1. GINGKO [Concomitant]
     Active Substance: GINKGO
  2. IVERMECTIN. [Suspect]
     Active Substance: IVERMECTIN
     Indication: INFECTION PARASITIC
     Dosage: 1 DOSE OF 4 PILLS ?3MG EACH ?
     Route: 048
     Dates: start: 20150310, end: 20150310
  3. RED CLOVER [Concomitant]
     Active Substance: RED CLOVER

REACTIONS (5)
  - Product substitution issue [None]
  - Hepatic pain [None]
  - Hangover [None]
  - Product taste abnormal [None]
  - Nausea [None]

NARRATIVE: CASE EVENT DATE: 20150310
